FAERS Safety Report 5793961-X (Version None)
Quarter: 2008Q2

REPORT INFORMATION
  Report Type: 
  Country: None (occurrence: None)
  Receive Date: 20080627
  Receipt Date: 20080616
  Transmission Date: 20081010
  Serious: Yes (Death, Other)
  Sender: FDA-Public Use
  Company Number: US-PFIZER INC-2007029064

PATIENT
  Sex: Male
  Weight: 90 kg

DRUGS (1)
  1. BEXTRA [Suspect]
     Dates: start: 20020101, end: 20030924

REACTIONS (3)
  - ANXIETY [None]
  - MYOCARDIAL INFARCTION [None]
  - SKIN REACTION [None]
